FAERS Safety Report 5911285-4 (Version None)
Quarter: 2008Q4

REPORT INFORMATION
  Report Type: 
  Country: None (occurrence: None)
  Receive Date: 20081007
  Receipt Date: 20081001
  Transmission Date: 20090506
  Serious: Yes (Other)
  Sender: FDA-Public Use
  Company Number: US-B.I. PHARMACEUTICALS,INC./RIDGEFIELD-2008-BP-15320PF

PATIENT
  Sex: Female
  Weight: 56 kg

DRUGS (4)
  1. SPIRIVA [Suspect]
     Indication: BRONCHITIS CHRONIC
     Dates: start: 20080829
  2. LYRICA [Suspect]
     Indication: FIBROMYALGIA
     Dosage: 300MG
     Dates: start: 20080829
  3. EFFEXOR [Suspect]
     Indication: BIPOLAR DISORDER
     Dosage: 150MG
     Dates: start: 20080829
  4. VALIUM [Concomitant]

REACTIONS (1)
  - CONSTIPATION [None]
